FAERS Safety Report 6067317-9 (Version None)
Quarter: 2009Q1

REPORT INFORMATION
  Report Type: 
  Country: None (occurrence: None)
  Receive Date: 20090204
  Receipt Date: 20090204
  Transmission Date: 20090719
  Serious: Yes (Hospitalization)
  Sender: FDA-Public Use
  Company Number: None

PATIENT
  Age: 55 Year
  Sex: Male

DRUGS (1)
  1. RISPERIDONE [Suspect]
     Indication: BIPOLAR I DISORDER
     Dosage: 3 MG EVERY DAY PO
     Route: 048
     Dates: start: 20080410, end: 20090127

REACTIONS (7)
  - ASTHENIA [None]
  - CONFUSIONAL STATE [None]
  - DYSSTASIA [None]
  - FALL [None]
  - JOINT INJURY [None]
  - LIMB INJURY [None]
  - MENTAL STATUS CHANGES [None]
